FAERS Safety Report 5027102-3 (Version None)
Quarter: 2006Q2

REPORT INFORMATION
  Report Type: 
  Country: None (occurrence: None)
  Receive Date: 20060608
  Receipt Date: 20060531
  Transmission Date: 20061013
  Serious: Yes (Disabling, Other)
  Sender: FDA-Public Use
  Company Number: 2006068368

PATIENT
  Age: 58 Year
  Sex: Male

DRUGS (4)
  1. ATORVASTATIN CALCIUM [Suspect]
     Indication: HYPERCHOLESTEROLAEMIA
     Dosage: 20 MG (20 MG, 1 IN 1 D), ORAL
     Route: 048
     Dates: start: 20060214, end: 20060522
  2. METFORMIN [Suspect]
     Indication: DIABETES MELLITUS
     Dosage: 1500 MG (DAILY), ORAL
     Route: 048
     Dates: start: 20060313, end: 20060522
  3. AMARYL [Suspect]
     Indication: DIABETES MELLITUS
     Dosage: 2 MG (2 MG, 1 IN 1 D), ORAL
     Route: 048
     Dates: start: 20060323, end: 20060522
  4. ASPIRIN [Concomitant]

REACTIONS (3)
  - LIVER DISORDER [None]
  - NAUSEA [None]
  - VOMITING [None]
